FAERS Safety Report 10094376 (Version 5)
Quarter: 2014Q2

REPORT INFORMATION
  Report Type: Spontaneous
  Country: JP (occurrence: None)
  Receive Date: 20140418
  Receipt Date: 20140624
  Transmission Date: 20141212
  Serious: Yes (Death, Other)
  Sender: FDA-Public Use
  Company Number: ADR-2014-00626

PATIENT
  Age: 56 Year
  Sex: Male
  Weight: 92 kg

DRUGS (1)
  1. GABALON INTRATHECAL [Suspect]
     Indication: SPINAL CORD DISORDER
     Dosage: 60MCG/DAY; SEE B5
     Dates: start: 20070417, end: 20140319

REACTIONS (3)
  - Cardiac disorder [None]
  - Completed suicide [None]
  - Asphyxia [None]
